FAERS Safety Report 13602636 (Version 1)
Quarter: 2017Q2

REPORT INFORMATION
  Report Type: Report from Study
  Country: HU (occurrence: HU)
  Receive Date: 20170601
  Receipt Date: 20170601
  Transmission Date: 20170830
  Serious: Yes (Life-Threatening, Hospitalization, Other)
  Sender: FDA-Public Use
  Company Number: HU-MYLANLABS-2017M1031768

PATIENT

DRUGS (3)
  1. NORTIVAN [Concomitant]
     Indication: HYPERTONIA
     Dosage: 80 MG, QD
     Route: 048
     Dates: start: 201701
  2. OMACOR [Suspect]
     Active Substance: OMEGA-3-ACID ETHYL ESTERS
     Indication: LIPID METABOLISM DISORDER
     Dosage: 1000 MG, QD
     Route: 048
     Dates: start: 20170318, end: 20170424
  3. LIPIDIL [Suspect]
     Active Substance: FENOFIBRATE
     Indication: LIPID METABOLISM DISORDER
     Dosage: 267 MG, QD
     Route: 048
     Dates: start: 20170318, end: 20170424

REACTIONS (2)
  - Fatigue [Recovered/Resolved]
  - Oesophageal varices haemorrhage [Recovered/Resolved]

NARRATIVE: CASE EVENT DATE: 20170323
